FAERS Safety Report 13693444 (Version 2)
Quarter: 2017Q3

REPORT INFORMATION
  Report Type: Report from Study
  Country: US (occurrence: US)
  Receive Date: 20170627
  Receipt Date: 20170717
  Transmission Date: 20171127
  Serious: Yes (Hospitalization, Other)
  Sender: FDA-Public Use
  Company Number: US-GILEAD-2017-0280071

PATIENT
  Age: 59 Year
  Sex: Female
  Weight: 87 kg

DRUGS (6)
  1. AMBRISENTAN [Suspect]
     Active Substance: AMBRISENTAN
     Indication: PRODUCT USED FOR UNKNOWN INDICATION
     Dosage: 10 MG, QD
     Route: 048
  2. ORENITRAM [Suspect]
     Active Substance: TREPROSTINIL
     Indication: PRODUCT USED FOR UNKNOWN INDICATION
     Dosage: 2.5 MG, TID
     Route: 048
  3. BUMEX [Concomitant]
     Active Substance: BUMETANIDE
  4. SILDENAFIL. [Concomitant]
     Active Substance: SILDENAFIL
  5. REVATIO [Concomitant]
     Active Substance: SILDENAFIL CITRATE
     Dosage: 20 MG, UNK
     Route: 048
  6. LASIX [Concomitant]
     Active Substance: FUROSEMIDE

REACTIONS (6)
  - Dyspnoea [Not Recovered/Not Resolved]
  - Pulmonary veno-occlusive disease [Unknown]
  - Oxygen saturation decreased [Unknown]
  - Pulmonary arterial hypertension [Recovered/Resolved]
  - Productive cough [Unknown]
  - Fluid overload [Recovered/Resolved]
